FAERS Safety Report 6895290-X (Version None)
Quarter: 2010Q3

REPORT INFORMATION
  Report Type: 
  Country: None (occurrence: None)
  Receive Date: 20100802
  Receipt Date: 20100721
  Transmission Date: 20110219
  Serious: Yes (Hospitalization)
  Sender: FDA-Public Use
  Company Number: JP-MERCK-1007USA03204

PATIENT
  Age: 90 Year
  Sex: Female

DRUGS (9)
  1. JANUVIA [Suspect]
     Indication: DIABETES MELLITUS
     Route: 048
     Dates: start: 20100715, end: 20100719
  2. FAMOTIDINE [Concomitant]
     Route: 048
  3. NITOROL-R [Concomitant]
     Route: 048
  4. AMLODIPINE BESYLATE [Concomitant]
     Indication: HYPERTENSION
     Route: 048
  5. ASPIRIN [Concomitant]
     Route: 048
  6. BLOPRESS [Concomitant]
     Route: 048
  7. ARICEPT [Concomitant]
     Route: 048
  8. PURSENNID [Concomitant]
     Route: 048
  9. AMARYL [Concomitant]
     Dosage: 2 MG IN MORNING, 1 MG IN DAYTIME, AND 1 MG IN EVENING
     Route: 048
     Dates: end: 20100712

REACTIONS (1)
  - HYPOGLYCAEMIA [None]
